FAERS Safety Report 5245221-3 (Version None)
Quarter: 2007Q1

REPORT INFORMATION
  Report Type: 
  Country: None (occurrence: None)
  Receive Date: 20070223
  Receipt Date: 20070215
  Transmission Date: 20070707
  Serious: Yes (Other)
  Sender: FDA-Public Use
  Company Number: SE-ROCHE-482871

PATIENT
  Sex: Male

DRUGS (1)
  1. CYMEVENE [Suspect]
     Indication: DRUG USE FOR UNKNOWN INDICATION
     Dosage: REPORTED FORM: POWDER FOR SOLUTION FOR INFUSION.
     Route: 065

REACTIONS (2)
  - HYPERBILIRUBINAEMIA [None]
  - RENAL FAILURE [None]
